FAERS Safety Report 25706360 (Version 1)
Quarter: 2025Q3

REPORT INFORMATION
  Report Type: Spontaneous
  Country: US (occurrence: None)
  Receive Date: 20250820
  Receipt Date: 20250820
  Transmission Date: 20251021
  Serious: Yes (Disabling)
  Sender: FDA-CTU
  Company Number: None

PATIENT
  Age: 58 Year
  Sex: Female
  Weight: 58.5 kg

DRUGS (16)
  1. ZICAM EXTREME CONGESTION RELIEF (OXYMETAZOLINE HYDROCHLORIDE) [Suspect]
     Active Substance: OXYMETAZOLINE HYDROCHLORIDE
     Indication: Paranasal sinus discomfort
     Route: 055
     Dates: start: 20250201
  2. Medronix Insuln pump [Concomitant]
  3. Novology [Concomitant]
  4. synhesis [Concomitant]
  5. ENALAPRIL [Concomitant]
     Active Substance: ENALAPRIL
  6. UNSPECIFIED INGREDIENT [Concomitant]
     Active Substance: UNSPECIFIED INGREDIENT
  7. HYDROCHLOROTHIAZIDE [Concomitant]
     Active Substance: HYDROCHLOROTHIAZIDE
  8. estrogen gel [Concomitant]
  9. PROGESTERONE [Concomitant]
     Active Substance: PROGESTERONE
  10. B12 [Concomitant]
  11. PYRIDOXINE HYDROCHLORIDE [Concomitant]
     Active Substance: PYRIDOXINE HYDROCHLORIDE
  12. VITAMIN B COMPLEX [Concomitant]
     Active Substance: CYANOCOBALAMIN\DEXPANTHENOL\NIACINAMIDE\PYRIDOXINE HYDROCHLORIDE\RIBOFLAVIN 5^-PHOSPHATE SODIUM\THIA
  13. PROBIOTICS NOS [Concomitant]
     Active Substance: PROBIOTICS NOS
  14. VITAMIN D3 [Concomitant]
     Active Substance: CHOLECALCIFEROL
  15. ginger turmeric gummy [Concomitant]
  16. apple cider vinegar gummy [Concomitant]

REACTIONS (3)
  - Parosmia [None]
  - Taste disorder [None]
  - Drug ineffective [None]

NARRATIVE: CASE EVENT DATE: 20250201
